FAERS Safety Report 9382519 (Version 1)
Quarter: 2013Q3

REPORT INFORMATION
  Report Type: Spontaneous
  Country: US (occurrence: US)
  Receive Date: 20130703
  Receipt Date: 20130703
  Transmission Date: 20140515
  Serious: No
  Sender: FDA-Public Use
  Company Number: US-UPSHER-SMITH LABORATORIES, INC.-12003563

PATIENT
  Age: 52 Year
  Sex: Female

DRUGS (5)
  1. DIVIGEL [Suspect]
     Indication: HOT FLUSH
     Dosage: 0.5 MG, QD
     Route: 061
     Dates: start: 2009, end: 201211
  2. PROMETRIUM [Concomitant]
     Dosage: UNK
  3. VAGIFEM [Concomitant]
     Dosage: UNK
  4. SYNTHROID [Concomitant]
     Dosage: UNK
  5. TESTOSTERONE [Suspect]
     Indication: BLOOD TESTOSTERONE DECREASED
     Dosage: UNK, UNK
     Route: 065
     Dates: start: 201206, end: 201210

REACTIONS (7)
  - Drug ineffective [Recovered/Resolved]
  - Product quality issue [Recovered/Resolved]
  - Libido decreased [Unknown]
  - Alopecia [Unknown]
  - Fatigue [Unknown]
  - Poor quality sleep [Unknown]
  - Anxiety [Unknown]
